FAERS Safety Report 24778959 (Version 1)
Quarter: 2024Q4

REPORT INFORMATION
  Report Type: Report from Study
  Country: FR (occurrence: FR)
  Receive Date: 20241226
  Receipt Date: 20241226
  Transmission Date: 20250115
  Serious: Yes (Hospitalization)
  Sender: ALEXION PHARMACEUTICALS
  Company Number: FR-ASTRAZENECA-202412GLO014680FR

PATIENT
  Age: 2 Year

DRUGS (74)
  1. KANUMA [Suspect]
     Active Substance: SEBELIPASE ALFA
     Indication: Lysosomal acid lipase deficiency
     Dosage: UNK, QW
  2. KANUMA [Suspect]
     Active Substance: SEBELIPASE ALFA
     Dosage: 1 MILLIGRAM/KILOGRAM, QW
  3. KANUMA [Suspect]
     Active Substance: SEBELIPASE ALFA
     Dosage: UNK, QW
  4. KANUMA [Suspect]
     Active Substance: SEBELIPASE ALFA
     Dosage: UNK, QW
  5. KANUMA [Suspect]
     Active Substance: SEBELIPASE ALFA
     Dosage: 3 MILLIGRAM/KILOGRAM, QW
  6. KANUMA [Suspect]
     Active Substance: SEBELIPASE ALFA
     Dosage: UNK, QW
  7. KANUMA [Suspect]
     Active Substance: SEBELIPASE ALFA
     Dosage: UNK, QW
  8. KANUMA [Suspect]
     Active Substance: SEBELIPASE ALFA
     Dosage: UNK, QW
  9. KANUMA [Suspect]
     Active Substance: SEBELIPASE ALFA
     Dosage: UNK, QW
  10. KANUMA [Suspect]
     Active Substance: SEBELIPASE ALFA
     Dosage: UNK, QW
  11. KANUMA [Suspect]
     Active Substance: SEBELIPASE ALFA
     Dosage: UNK
  12. KANUMA [Suspect]
     Active Substance: SEBELIPASE ALFA
     Dosage: UNK
  13. KANUMA [Suspect]
     Active Substance: SEBELIPASE ALFA
     Dosage: UNK
  14. KANUMA [Suspect]
     Active Substance: SEBELIPASE ALFA
     Dosage: UNK
  15. KANUMA [Suspect]
     Active Substance: SEBELIPASE ALFA
     Dosage: UNK, QW
  16. ALBUMIN HUMAN [Concomitant]
     Active Substance: ALBUMIN HUMAN
     Indication: Hypoalbuminaemia
     Dosage: 2 GRAM PER KILOGRAM, QD
  17. ALBUMIN HUMAN [Concomitant]
     Active Substance: ALBUMIN HUMAN
     Dosage: 5 GRAM PER KILOGRAM, QD
  18. ALBUMIN HUMAN [Concomitant]
     Active Substance: ALBUMIN HUMAN
     Dosage: 20 GRAM, QD
  19. ALBUMIN HUMAN [Concomitant]
     Active Substance: ALBUMIN HUMAN
     Dosage: 20 GRAM, QD
  20. ALBUMIN HUMAN [Concomitant]
     Active Substance: ALBUMIN HUMAN
     Dosage: 2 GRAM PER KILOGRAM, QD
  21. ALBUMIN HUMAN [Concomitant]
     Active Substance: ALBUMIN HUMAN
     Dosage: 2 GRAM PER KILOGRAM, QD
  22. ALBUMIN HUMAN [Concomitant]
     Active Substance: ALBUMIN HUMAN
     Dosage: 2 GRAM PER KILOGRAM, QD
  23. ALBUMIN HUMAN [Concomitant]
     Active Substance: ALBUMIN HUMAN
     Dosage: 2 GRAM PER KILOGRAM, QD
  24. ALBUMIN HUMAN [Concomitant]
     Active Substance: ALBUMIN HUMAN
     Dosage: 2 GRAM PER KILOGRAM, QD
  25. ALBUMIN HUMAN [Concomitant]
     Active Substance: ALBUMIN HUMAN
     Dosage: 2 GRAM PER KILOGRAM, QD
  26. ALBUMIN HUMAN [Concomitant]
     Active Substance: ALBUMIN HUMAN
     Dosage: 2 GRAM PER KILOGRAM, QD
  27. ALBUMIN HUMAN [Concomitant]
     Active Substance: ALBUMIN HUMAN
     Dosage: 33.3MILLILITERS PER HOU, QD
  28. AMIKACIN SULFATE [Concomitant]
     Active Substance: AMIKACIN SULFATE
     Indication: Antibiotic therapy
     Dosage: UNK
     Route: 050
  29. AMOXICILLIN [Concomitant]
     Active Substance: AMOXICILLIN
     Indication: Antibiotic therapy
     Dosage: UNK
     Route: 050
  30. ATARAX [Concomitant]
     Active Substance: HYDROXYZINE HYDROCHLORIDE
     Indication: Drug therapy
     Dosage: 2.5, SINGLE
  31. SODIUM BICARBONATE [Concomitant]
     Active Substance: SODIUM BICARBONATE
     Indication: Acidosis
     Dosage: UNK MILLIMOLE PER KILOGRAM, SINGLE
  32. DEXTROSE MONOHYDRATE\POTASSIUM CHLORIDE\SODIUM CHLORIDE [Concomitant]
     Active Substance: DEXTROSE MONOHYDRATE\POTASSIUM CHLORIDE\SODIUM CHLORIDE
     Indication: Diarrhoea
     Dosage: 10 PERCENT, QD
  33. DEXTROSE MONOHYDRATE\POTASSIUM CHLORIDE\SODIUM CHLORIDE [Concomitant]
     Active Substance: DEXTROSE MONOHYDRATE\POTASSIUM CHLORIDE\SODIUM CHLORIDE
     Indication: Diarrhoea
     Dosage: 5 PERCENT, QD
  34. Calcidose [Concomitant]
     Indication: Vitamin D deficiency
     Dosage: 500 MILLIGRAM, QD
  35. CEFEPIME [Concomitant]
     Active Substance: CEFEPIME HYDROCHLORIDE
     Indication: Antibiotic therapy
     Dosage: UNK
     Route: 050
  36. Celestene [Concomitant]
     Indication: Premedication
     Dosage: 50 GTT, SINGLE
  37. CLAFORAN [Concomitant]
     Active Substance: CEFOTAXIME SODIUM
     Indication: Antibiotic therapy
     Dosage: 100 KILOGRAM, QD
  38. ESOMEPRAZOLE [Concomitant]
     Active Substance: ESOMEPRAZOLE
     Indication: Gastrooesophageal reflux disease
     Dosage: 10 MILLIGRAM, QD
  39. SODIUM FEREDETATE [Concomitant]
     Active Substance: SODIUM FEREDETATE
     Indication: Iron deficiency
     Dosage: 10 MILLIGRAM, QD
  40. FUROSEMIDE [Concomitant]
     Active Substance: FUROSEMIDE
     Indication: Diuretic therapy
     Dosage: 0.5 MILLIGRAM/KILOGRAM, BID
  41. FUROSEMIDE [Concomitant]
     Active Substance: FUROSEMIDE
     Dosage: 0.5 MILLIGRAM/KILOGRAM, BID
  42. FUROSEMIDE [Concomitant]
     Active Substance: FUROSEMIDE
     Dosage: 0.5 MILLIGRAM/KILOGRAM, BID
  43. ESOMEPRAZOLE [Concomitant]
     Active Substance: ESOMEPRAZOLE
     Indication: Gastrooesophageal reflux disease
     Dosage: 6 MILLIGRAM, QD
  44. KCL [Concomitant]
     Active Substance: POTASSIUM CHLORIDE
     Indication: Hypokalaemia
     Dosage: UNK UNK, QD
  45. KCL [Concomitant]
     Active Substance: POTASSIUM CHLORIDE
     Dosage: 6 MILLIMOLE PER KILOGRAM/J, QD
  46. FUROSEMIDE [Concomitant]
     Active Substance: FUROSEMIDE
     Indication: Diuretic therapy
     Dosage: 10 MILLIGRAM, QD
  47. FUROSEMIDE [Concomitant]
     Active Substance: FUROSEMIDE
     Indication: Oedema
     Dosage: 7 MILLIGRAM, SINGLE
  48. LINEZOLID [Concomitant]
     Active Substance: LINEZOLID
     Indication: Antibiotic therapy
     Dosage: 10 MILLIGRAM/KILOGRAM/8H, QD
  49. LOVENOX [Concomitant]
     Active Substance: ENOXAPARIN SODIUM
     Indication: Anticoagulant therapy
     Dosage: UNK
     Route: 050
  50. MUPIROCIN [Concomitant]
     Active Substance: MUPIROCIN
     Indication: Antibiotic therapy
     Dosage: 2 PERCENT, QD
     Route: 050
  51. NYSTATIN [Concomitant]
     Active Substance: NYSTATIN
     Indication: Antifungal prophylaxis
     Dosage: 1 MILLILITER, TID
  52. SODIUM CHLORIDE [Concomitant]
     Active Substance: SODIUM CHLORIDE
     Indication: Diarrhoea
     Dosage: 1 GRAM PER LITRE, QD
  53. ACETAMINOPHEN [Concomitant]
     Active Substance: ACETAMINOPHEN
     Indication: Pyrexia
     Dosage: UNK MILLIGRAM, PRN
  54. PRIVIGEN [Concomitant]
     Active Substance: HUMAN IMMUNOGLOBULIN G
     Indication: Hypoalbuminaemia
     Dosage: 0.4 GRAM PER KILOGRAM, QD
  55. QUESTRAN [Concomitant]
     Active Substance: CHOLESTYRAMINE
     Indication: Hypercholesterolaemia
     Dosage: 1 GRAM, BID
  56. QUESTRAN [Concomitant]
     Active Substance: CHOLESTYRAMINE
     Dosage: 1 GRAM, TID
  57. LACTATED RINGERS SOLUTION [Concomitant]
     Active Substance: CALCIUM CHLORIDE\POTASSIUM CHLORIDE\SODIUM CHLORIDE\SODIUM LACTATE
     Indication: Dehydration
     Dosage: UNK UNK, CONTINUOUSLY
  58. CEFTRIAXONE SODIUM [Concomitant]
     Active Substance: CEFTRIAXONE SODIUM
     Indication: Antibiotic therapy
     Dosage: UNK MILLIGRAM/KILOGRAM
  59. SODIUM BICARBONATE [Concomitant]
     Active Substance: SODIUM BICARBONATE
     Indication: Supplementation therapy
     Dosage: 1500 MILLIGRAM, Q4W
  60. PIPERACILLIN SODIUM\TAZOBACTAM SODIUM [Concomitant]
     Active Substance: PIPERACILLIN SODIUM\TAZOBACTAM SODIUM
     Indication: Antibiotic therapy
     Dosage: 2/0.25 GRAM, QD
  61. RACECADOTRIL [Concomitant]
     Active Substance: RACECADOTRIL
     Indication: Diarrhoea
     Dosage: 30 MILLIGRAM, TID, PRN
  62. RACECADOTRIL [Concomitant]
     Active Substance: RACECADOTRIL
     Dosage: 30 MILLIGRAM, TID
  63. ALFACALCIDOL [Concomitant]
     Active Substance: ALFACALCIDOL
     Indication: Vitamin D deficiency
     Dosage: 20 GTT, BID
  64. VANCOMYCIN [Concomitant]
     Active Substance: VANCOMYCIN
     Indication: Antibiotic therapy
     Dosage: 330 MILLIGRAM, QD
  65. VANCOMYCIN [Concomitant]
     Active Substance: VANCOMYCIN
     Indication: Antibiotic therapy
     Dosage: UNK UNK, CONTINUOUSLY
  66. VANCOMYCIN [Concomitant]
     Active Substance: VANCOMYCIN
     Indication: Rhinovirus infection
     Dosage: UNK MILLIGRAM
  67. VANCOMYCIN [Concomitant]
     Active Substance: VANCOMYCIN
     Dosage: 40 MILLIGRAM/KILOGRAM, QD
  68. VANCOMYCIN [Concomitant]
     Active Substance: VANCOMYCIN
     Dosage: 40 MILLIGRAM/KILOGRAM, CONTINUOUSLY
  69. VANCOMYCIN [Concomitant]
     Active Substance: VANCOMYCIN
     Dosage: 60 MILLILITRE PER KILOGRAM, CONTINUOUSLY
  70. VENOFER [Concomitant]
     Active Substance: IRON SUCROSE
     Indication: Anaemia
     Dosage: 7 MILLIGRAM/KILOGRAM, QD
  71. VITAMIN D [Concomitant]
     Active Substance: VITAMIN D NOS
     Indication: Hypocalcaemia
     Dosage: UNK INTERNATIONAL UNIT, Q2W
  72. VITAMIN K1 [Concomitant]
     Active Substance: PHYTONADIONE
     Indication: Vitamin K deficiency
     Dosage: 10 MILLIGRAM PER MILLILITRE, QD
  73. CHOLECALCIFEROL [Concomitant]
     Active Substance: CHOLECALCIFEROL
     Indication: Vitamin supplementation
     Dosage: 3 UNK, QD
  74. PIPERACILLIN SODIUM\TAZOBACTAM SODIUM [Concomitant]
     Active Substance: PIPERACILLIN SODIUM\TAZOBACTAM SODIUM
     Indication: Antibiotic therapy
     Dosage: UNK
     Route: 050

REACTIONS (1)
  - Acidosis hyperchloraemic [Recovered/Resolved]
